FAERS Safety Report 7141497-6 (Version None)
Quarter: 2010Q4

REPORT INFORMATION
  Report Type: 
  Country: None (occurrence: None)
  Receive Date: 20101207
  Receipt Date: 20101129
  Transmission Date: 20110411
  Serious: Yes (Hospitalization)
  Sender: FDA-Public Use
  Company Number: JP-TYCO HEALTHCARE/MALLINCKRODT-T201002328

PATIENT
  Sex: Male
  Weight: 43.3 kg

DRUGS (7)
  1. METHADONE [Suspect]
     Indication: CANCER PAIN
     Dosage: 30 MG, TID
     Route: 048
     Dates: start: 20101102, end: 20101105
  2. METHADONE [Suspect]
     Dosage: 45 MG, TID
     Route: 048
     Dates: start: 20101106, end: 20101109
  3. METHADONE [Suspect]
     Dosage: 60 MG, TID
     Route: 048
     Dates: start: 20101110, end: 20101118
  4. OXINORM [Suspect]
     Indication: CANCER PAIN
     Dosage: 2.5 - 60 MG SEVERAL TIMES AS NEEDED
     Route: 048
     Dates: start: 20100722
  5. CELECOX [Concomitant]
     Dosage: 200 MG, BID
     Dates: start: 20100723
  6. OXYCODONE HCL [Concomitant]
     Dosage: UNK
     Dates: end: 20101101
  7. DUROTEP [Concomitant]
     Dosage: 16.8 MG, UNK
     Dates: start: 20101122

REACTIONS (1)
  - SOMNOLENCE [None]
